FAERS Safety Report 12870016 (Version 1)
Quarter: 2016Q4

REPORT INFORMATION
  Report Type: Spontaneous
  Country: US (occurrence: US)
  Receive Date: 20161021
  Receipt Date: 20161021
  Transmission Date: 20170207
  Serious: No
  Sender: FDA-Public Use
  Company Number: US-GLAXOSMITHKLINE-US2016154755

PATIENT
  Sex: Female

DRUGS (1)
  1. VOLTAREN [Suspect]
     Active Substance: DICLOFENAC SODIUM
     Indication: BACK PAIN
     Dosage: UNK
     Dates: start: 2016, end: 20161010

REACTIONS (4)
  - Therapeutic response unexpected [Unknown]
  - Intentional product use issue [Unknown]
  - Drug administered at inappropriate site [Unknown]
  - Prescription drug used without a prescription [Unknown]
